FAERS Safety Report 15897168 (Version 1)
Quarter: 2019Q1

REPORT INFORMATION
  Report Type: Spontaneous
  Country: US (occurrence: US)
  Receive Date: 20190131
  Receipt Date: 20190131
  Transmission Date: 20190417
  Serious: No
  Sender: FDA-Public Use
  Company Number: US-GLAXOSMITHKLINE-US2019009781

PATIENT
  Age: 75 Year
  Sex: Female

DRUGS (1)
  1. INCRUSE ELLIPTA [Suspect]
     Active Substance: UMECLIDINIUM BROMIDE
     Indication: PRODUCT USED FOR UNKNOWN INDICATION
     Dosage: UNK
     Dates: start: 20190114, end: 20190118

REACTIONS (11)
  - Dyspnoea [Not Recovered/Not Resolved]
  - Gastric disorder [Recovered/Resolved]
  - Heart rate irregular [Unknown]
  - Condition aggravated [Unknown]
  - Nasopharyngitis [Unknown]
  - Myalgia [Unknown]
  - Contusion [Unknown]
  - Chest discomfort [Not Recovered/Not Resolved]
  - Cough [Not Recovered/Not Resolved]
  - Rhinorrhoea [Not Recovered/Not Resolved]
  - Arthralgia [Unknown]

NARRATIVE: CASE EVENT DATE: 20190114
